FAERS Safety Report 9714222 (Version 1)
Quarter: 2013Q4

REPORT INFORMATION
  Report Type: Spontaneous
  Country: US (occurrence: US)
  Receive Date: 20131126
  Receipt Date: 20131126
  Transmission Date: 20140711
  Serious: No
  Sender: FDA-Public Use
  Company Number: US-GILEAD-2008-0019465

PATIENT
  Sex: Male
  Weight: 72.57 kg

DRUGS (8)
  1. LETAIRIS [Suspect]
     Indication: PULMONARY ARTERIAL HYPERTENSION
     Route: 048
     Dates: start: 20081106
  2. REVATIO [Concomitant]
  3. COUMADIN [Concomitant]
  4. PROCARDIA XT [Concomitant]
  5. LANOXIN [Concomitant]
  6. LASIX [Concomitant]
  7. TYLENOL [Concomitant]
  8. SYNTHROID [Concomitant]

REACTIONS (2)
  - Musculoskeletal pain [None]
  - Oedema peripheral [None]
